FAERS Safety Report 19786255 (Version 1)
Quarter: 2021Q3

REPORT INFORMATION
  Report Type: Spontaneous
  Country: US (occurrence: US)
  Receive Date: 20210903
  Receipt Date: 20210903
  Transmission Date: 20211014
  Serious: Yes (Death, Hospitalization, Other)
  Sender: FDA-Public Use
  Company Number: US-PFIZER INC-2021239942

PATIENT
  Age: 79 Year
  Sex: Male
  Weight: 63.5 kg

DRUGS (2)
  1. TIGAN [Suspect]
     Active Substance: TRIMETHOBENZAMIDE HYDROCHLORIDE
     Indication: NAUSEA
     Dosage: 300 MG, 4X/DAY
  2. TIGAN [Suspect]
     Active Substance: TRIMETHOBENZAMIDE HYDROCHLORIDE
     Dosage: UNK

REACTIONS (15)
  - Eating disorder [Unknown]
  - Cardiac dysfunction [Unknown]
  - Asthenia [Unknown]
  - Dyspnoea [Unknown]
  - Cardiac failure congestive [Fatal]
  - Atrial fibrillation [Unknown]
  - Abdominal pain [Unknown]
  - Peripheral swelling [Unknown]
  - Dehydration [Unknown]
  - Malnutrition [Unknown]
  - Respiratory failure [Fatal]
  - Pain [Unknown]
  - Constipation [Unknown]
  - Weight decreased [Unknown]
  - Emotional distress [Unknown]

NARRATIVE: CASE EVENT DATE: 202102
